FAERS Safety Report 19711998 (Version 1)
Quarter: 2021Q3

REPORT INFORMATION
  Report Type: Spontaneous
  Country: US (occurrence: US)
  Receive Date: 20210816
  Receipt Date: 20210816
  Transmission Date: 20211014
  Serious: No
  Sender: FDA-Public Use
  Company Number: US-ASCENT PHARMACEUTICALS, INC.-2115131

PATIENT
  Age: 36 Year
  Sex: Male
  Weight: 90.91 kg

DRUGS (3)
  1. VENLAFAXINE HYDROCHLORIDE. [Suspect]
     Active Substance: VENLAFAXINE HYDROCHLORIDE
     Indication: ANXIETY
     Route: 048
  2. AMPHETAMINE EXTENDED?RELEASE CAPSULE 25MG [Concomitant]
     Route: 065
  3. GUANFACINE EXTENDED?RELEASE [Concomitant]
     Active Substance: GUANFACINE
     Route: 065

REACTIONS (1)
  - Product residue present [Unknown]

NARRATIVE: CASE EVENT DATE: 20210614
